FAERS Safety Report 13385986 (Version 2)
Quarter: 2017Q1

REPORT INFORMATION
  Report Type: Spontaneous
  Country: CA (occurrence: CA)
  Receive Date: 20170330
  Receipt Date: 20170331
  Transmission Date: 20170429
  Serious: Yes (Other)
  Sender: FDA-Public Use
  Company Number: CA-JNJFOC-20170319755

PATIENT
  Age: 50 Year
  Sex: Female
  Weight: 52.16 kg

DRUGS (1)
  1. VISINE TOTALITY MULTI SYMPTOM RELIEF [Suspect]
     Active Substance: GLYCERIN\HYPROMELLOSES\POLYETHYLENE GLYCOL 400\TETRAHYDROZOLINE HYDROCHLORIDE\ZINC SULFATE
     Indication: ASTHENOPIA
     Dosage: 1-2 DROP, 1 TIMES ONLY
     Route: 047
     Dates: start: 20170310, end: 20170310

REACTIONS (3)
  - Blindness [Not Recovered/Not Resolved]
  - Product use issue [Not Recovered/Not Resolved]
  - Eye irritation [Not Recovered/Not Resolved]

NARRATIVE: CASE EVENT DATE: 20170310
